FAERS Safety Report 4950662-5 (Version None)
Quarter: 2006Q1

REPORT INFORMATION
  Report Type: 
  Country: None (occurrence: None)
  Receive Date: 20060322
  Receipt Date: 20060313
  Transmission Date: 20060701
  Serious: Yes (Death, Hospitalization)
  Sender: FDA-Public Use
  Company Number: US-MERCK-0603USA02759

PATIENT
  Age: 46 Year
  Sex: Female
  Weight: 77 kg

DRUGS (9)
  1. VIOXX [Suspect]
     Indication: ARTHRITIS
     Route: 048
     Dates: start: 20010301, end: 20030101
  2. VIOXX [Suspect]
     Indication: RHEUMATOID ARTHRITIS
     Route: 048
     Dates: start: 20010301, end: 20030101
  3. LIPITOR [Concomitant]
     Route: 065
  4. PREVACID [Concomitant]
     Route: 065
  5. MONOPRIL [Concomitant]
     Route: 065
  6. ARAVA [Concomitant]
     Route: 065
  7. PREDNISONE [Concomitant]
     Route: 065
  8. FOSAMAX [Concomitant]
     Route: 065
  9. NEURONTIN [Concomitant]
     Route: 065

REACTIONS (1)
  - MYOCARDIAL INFARCTION [None]
